FAERS Safety Report 25716390 (Version 1)
Quarter: 2025Q3

REPORT INFORMATION
  Report Type: Report from Study
  Country: CA (occurrence: CA)
  Receive Date: 20250822
  Receipt Date: 20250822
  Transmission Date: 20251021
  Serious: Yes (Other)
  Sender: TAKEDA
  Company Number: CA-TAKEDA-2021TUS047433

PATIENT
  Age: 52 Year
  Sex: Female

DRUGS (16)
  1. LANADELUMAB [Suspect]
     Active Substance: LANADELUMAB
     Indication: Hereditary angioedema
  2. LANADELUMAB [Suspect]
     Active Substance: LANADELUMAB
     Indication: Hereditary angioedema with C1 esterase inhibitor deficiency
  3. LANADELUMAB [Suspect]
     Active Substance: LANADELUMAB
  4. LANADELUMAB [Suspect]
     Active Substance: LANADELUMAB
  5. LANADELUMAB [Suspect]
     Active Substance: LANADELUMAB
  6. LANADELUMAB [Suspect]
     Active Substance: LANADELUMAB
     Dosage: 300 MILLIGRAM, Q2WEEKS
  7. LANADELUMAB [Suspect]
     Active Substance: LANADELUMAB
     Dosage: UNK UNK, Q2WEEKS
     Dates: start: 20221128
  8. FIRAZYR [Suspect]
     Active Substance: ICATIBANT ACETATE
     Indication: Hereditary angioedema with C1 esterase inhibitor deficiency
  9. FIRAZYR [Suspect]
     Active Substance: ICATIBANT ACETATE
     Dosage: UNK UNK, Q2WEEKS
     Dates: start: 20221128
  10. FIRAZYR [Suspect]
     Active Substance: ICATIBANT ACETATE
  11. FIRAZYR [Suspect]
     Active Substance: ICATIBANT ACETATE
  12. FIRAZYR [Suspect]
     Active Substance: ICATIBANT ACETATE
  13. FIRAZYR [Suspect]
     Active Substance: ICATIBANT ACETATE
  14. FIRAZYR [Suspect]
     Active Substance: ICATIBANT ACETATE
  15. FIRAZYR [Suspect]
     Active Substance: ICATIBANT ACETATE
  16. FIRAZYR [Suspect]
     Active Substance: ICATIBANT ACETATE

REACTIONS (25)
  - Gastric ulcer [Unknown]
  - Mood altered [Recovered/Resolved]
  - Poor quality sleep [Recovered/Resolved]
  - Tinnitus [Recovered/Resolved]
  - Hypoaesthesia [Recovering/Resolving]
  - Back pain [Recovering/Resolving]
  - Exposure to extreme temperature [Unknown]
  - Stress [Unknown]
  - Muscle strain [Unknown]
  - Muscle injury [Unknown]
  - Fall [Unknown]
  - Abdominal discomfort [Unknown]
  - Gastrointestinal disorder [Unknown]
  - Anxiety [Unknown]
  - Nervousness [Unknown]
  - Abdominal pain [Recovering/Resolving]
  - Abdominal distension [Recovering/Resolving]
  - Infusion site swelling [Unknown]
  - Expired product administered [Unknown]
  - Insomnia [Unknown]
  - Hereditary angioedema [Recovering/Resolving]
  - Injection site pain [Unknown]
  - Injection site erythema [Unknown]
  - Dizziness [Recovered/Resolved]
  - Myalgia [Unknown]

NARRATIVE: CASE EVENT DATE: 20210808
